FAERS Safety Report 9026179 (Version 1)
Quarter: 2013Q1

REPORT INFORMATION
  Report Type: Spontaneous
  Country: US (occurrence: None)
  Receive Date: 20130108
  Receipt Date: 20130108
  Transmission Date: 20140127
  Serious: Yes (Other)
  Sender: FDA-Public Use
  Company Number: 1547625

PATIENT
  Age: 76 Year
  Sex: 0

DRUGS (5)
  1. VINCRISTINE SULFATE INJECTION, USP, 1MG/ML (VINCRISTINE SULFATE) [Suspect]
     Indication: OFF LABEL USE
  2. RITUXIMAB [Suspect]
     Indication: OFF LABEL USE
  3. CYCLOPHOSPHAMIDE [Suspect]
     Indication: OFF LABEL USE
  4. DOXORUBICIN [Suspect]
     Indication: OFF LABEL USE
  5. PREDNISONE [Suspect]

REACTIONS (1)
  - Deep vein thrombosis [None]
